FAERS Safety Report 8809937 (Version 3)
Quarter: 2013Q2

REPORT INFORMATION
  Report Type: Spontaneous
  Country: US (occurrence: US)
  Receive Date: 20120926
  Receipt Date: 20130523
  Transmission Date: 20140414
  Serious: Yes (Other)
  Sender: FDA-Public Use
  Company Number: US-009507513-1208USA012322

PATIENT
  Sex: Female
  Weight: 70.3 kg

DRUGS (6)
  1. REBETOL [Suspect]
     Indication: HEPATITIS C
     Dosage: 3 DF, BID
     Route: 048
     Dates: start: 20120612, end: 2012
  2. REBETOL [Suspect]
     Dosage: 4 DF, 2 IN THE MORNING AND 2 AT NIGHT
     Route: 048
     Dates: start: 2012, end: 2012
  3. REBETOL [Suspect]
     Dosage: 3 DF, 2 IN THE MORNING AND 1 AT NIGHT.
     Dates: start: 2012, end: 20130104
  4. VICTRELIS [Suspect]
     Indication: HEPATITIS C
     Dosage: UNK
     Route: 048
     Dates: start: 20120717, end: 20130104
  5. PEGASYS [Concomitant]
     Indication: HEPATITIS C
     Dosage: 180 MICROGRAM, QW
     Dates: start: 20120612, end: 2012
  6. PEGASYS [Concomitant]
     Dosage: 135 MG, UNK
     Dates: start: 2012, end: 20130104

REACTIONS (24)
  - Hallucination [Unknown]
  - Vitamin D decreased [Unknown]
  - Fatigue [Unknown]
  - Dizziness [Unknown]
  - Depressed level of consciousness [Unknown]
  - Poor quality sleep [Unknown]
  - Neck pain [Unknown]
  - Headache [Unknown]
  - Weight decreased [Unknown]
  - Dizziness [Unknown]
  - White blood cell count abnormal [Unknown]
  - Red blood cell count decreased [Unknown]
  - Fatigue [Unknown]
  - Dizziness [Unknown]
  - Dizziness [Unknown]
  - Decreased appetite [Unknown]
  - Irritability [Unknown]
  - Musculoskeletal stiffness [Unknown]
  - Nausea [Unknown]
  - Alopecia [Unknown]
  - Weight decreased [Unknown]
  - Haemoglobin decreased [Unknown]
  - Haemoglobin decreased [Unknown]
  - Anaemia [Unknown]
